FAERS Safety Report 8236083-0 (Version None)
Quarter: 2012Q1

REPORT INFORMATION
  Report Type: 
  Country: None (occurrence: None)
  Receive Date: 20120327
  Receipt Date: 20120313
  Transmission Date: 20120608
  Serious: Yes (Life-Threatening, Hospitalization, Other)
  Sender: FDA-Public Use
  Company Number: DE-BIOGENIDEC-2011BI029060

PATIENT
  Age: 31 Year
  Sex: Male

DRUGS (7)
  1. LORAZEPAM [Concomitant]
  2. TYSABRI [Suspect]
     Indication: RELAPSING-REMITTING MULTIPLE SCLEROSIS
     Route: 042
     Dates: start: 20080507, end: 20110718
  3. MIRTAZAPINE [Concomitant]
  4. ENOXAPARIN SODIUM [Concomitant]
     Route: 058
  5. KEPPRA [Concomitant]
  6. MOVIPREP [Concomitant]
  7. PANTOPRAZOLE [Concomitant]

REACTIONS (2)
  - PROGRESSIVE MULTIFOCAL LEUKOENCEPHALOPATHY [None]
  - IMMUNE RECONSTITUTION SYNDROME [None]
